FAERS Safety Report 12364406 (Version 1)
Quarter: 2016Q2

REPORT INFORMATION
  Report Type: Spontaneous
  Country: DE (occurrence: DE)
  Receive Date: 20160513
  Receipt Date: 20160513
  Transmission Date: 20160815
  Serious: Yes (Hospitalization)
  Sender: FDA-Public Use
  Company Number: DE-MYLANLABS-2016M1018012

PATIENT

DRUGS (4)
  1. PROTHIPENDYL [Concomitant]
     Active Substance: PROTHIPENDYL
     Dosage: 80 MG/DAY
  2. OLANZAPINE. [Suspect]
     Active Substance: OLANZAPINE
     Indication: SCHIZOAFFECTIVE DISORDER
     Dosage: 20 MG/DAY
  3. OLANZAPINE. [Suspect]
     Active Substance: OLANZAPINE
     Dosage: 25 MG/DAY
     Route: 065
  4. LEVOTHYROXINE SODIUM. [Concomitant]
     Active Substance: LEVOTHYROXINE SODIUM
     Indication: NIGHT SWEATS
     Dosage: 50 MCG/DAY

REACTIONS (1)
  - Somnambulism [Recovered/Resolved]
